FAERS Safety Report 19047084 (Version 1)
Quarter: 2021Q1

REPORT INFORMATION
  Report Type: Spontaneous
  Country: GB (occurrence: GB)
  Receive Date: 20210323
  Receipt Date: 20210323
  Transmission Date: 20210420
  Serious: Yes (Other)
  Sender: FDA-Public Use
  Company Number: GB-JNJFOC-20210334239

PATIENT
  Age: 34 Year
  Sex: Male

DRUGS (8)
  1. STELARA [Suspect]
     Active Substance: USTEKINUMAB
     Indication: CROHN^S DISEASE
     Route: 058
     Dates: start: 20200901
  2. ADCAL D3 [Concomitant]
     Active Substance: CALCIUM CARBONATE\CHOLECALCIFEROL
  3. CODEINE [Concomitant]
     Active Substance: CODEINE
     Dosage: 30?60MG
  4. PARACETAMOL [Concomitant]
     Active Substance: ACETAMINOPHEN
  5. DALTEPARIN [Concomitant]
     Active Substance: DALTEPARIN
     Dosage: AT TEA TIME
  6. PREDNISOLONE. [Concomitant]
     Active Substance: PREDNISOLONE
     Dosage: 40MG OD FOR 7 DAYS THEN REDUCE BY 5MG EVERY 7 DAYS UNTIL STOP
  7. AMITRIPTYLINE [Suspect]
     Active Substance: AMITRIPTYLINE
     Indication: PAIN
     Route: 065
     Dates: start: 20200826
  8. OMEPRAZOLE. [Concomitant]
     Active Substance: OMEPRAZOLE

REACTIONS (1)
  - Alanine aminotransferase increased [Recovered/Resolved]
